FAERS Safety Report 7649511-6 (Version None)
Quarter: 2011Q3

REPORT INFORMATION
  Report Type: 
  Country: None (occurrence: None)
  Receive Date: 20110802
  Receipt Date: 20110722
  Transmission Date: 20111222
  Serious: Yes (Other)
  Sender: FDA-Public Use
  Company Number: US-BAYER-201040572NA

PATIENT
  Age: 17 Year
  Sex: Female
  Weight: 54.422 kg

DRUGS (12)
  1. HYDROCODONE [Concomitant]
     Indication: MIGRAINE
     Dosage: UNK
     Dates: start: 20050101, end: 20100101
  2. CARISOPRODOL [Concomitant]
     Dosage: 350 MG, UNK
     Dates: start: 20090620
  3. YASMIN [Suspect]
     Indication: ACNE
  4. FLUCONAZOLE [Concomitant]
     Dosage: 150 MG, UNK
     Dates: start: 20090913
  5. SKELAXIN [Concomitant]
     Dosage: 800 MG, UNK
     Dates: start: 20090610
  6. YAZ [Suspect]
     Indication: MENSTRUATION IRREGULAR
  7. YASMIN [Suspect]
     Indication: CONTRACEPTION
     Dosage: UNK
     Route: 048
     Dates: start: 20050101, end: 20090101
  8. YAZ [Suspect]
     Indication: CONTRACEPTION
     Dosage: UNK
     Route: 048
     Dates: start: 20050101, end: 20090101
  9. YASMIN [Suspect]
     Indication: MENSTRUATION IRREGULAR
  10. NSAID'S [Concomitant]
     Dosage: UNK UNK, PRN
  11. YAZ [Suspect]
     Indication: ACNE
  12. ZITHROMAX [Concomitant]
     Dosage: UNK
     Dates: start: 20050101, end: 20100101

REACTIONS (7)
  - CHOLECYSTITIS CHRONIC [None]
  - VOMITING [None]
  - PAIN [None]
  - ABDOMINAL PAIN UPPER [None]
  - PROCEDURAL PAIN [None]
  - NAUSEA [None]
  - GALLBLADDER DISORDER [None]
